FAERS Safety Report 20745629 (Version 1)
Quarter: 2022Q2

REPORT INFORMATION
  Report Type: Spontaneous
  Country: US (occurrence: US)
  Receive Date: 20220425
  Receipt Date: 20220425
  Transmission Date: 20220721
  Serious: No
  Sender: FDA-Public Use
  Company Number: US-BAYER-2022A055064

PATIENT
  Age: 42 Year
  Sex: Male

DRUGS (1)
  1. KOGENATE FS [Suspect]
     Active Substance: ANTIHEMOPHILIC FACTOR, HUMAN RECOMBINANT
     Indication: Factor VIII deficiency
     Dosage: 4500 U, PRN
     Route: 042
     Dates: start: 20220216

REACTIONS (1)
  - Product dose omission issue [None]

NARRATIVE: CASE EVENT DATE: 20220413
